FAERS Safety Report 8033513-4 (Version None)
Quarter: 2012Q1

REPORT INFORMATION
  Report Type: 
  Country: None (occurrence: None)
  Receive Date: 20120110
  Receipt Date: 20120106
  Transmission Date: 20120608
  Serious: Yes (Hospitalization)
  Sender: FDA-Public Use
  Company Number: DE-ROCHE-1028530

PATIENT
  Sex: Male

DRUGS (2)
  1. MYCOPHENOLATE MOFETIL (CELLCEPT) [Suspect]
     Indication: RENAL TRANSPLANT
     Dosage: UNKNOWN
  2. MYFORTIC [Suspect]
     Indication: RENAL TRANSPLANT
     Dosage: UNKNOWN

REACTIONS (1)
  - VASCULITIS CEREBRAL [None]
